FAERS Safety Report 14423943 (Version 1)
Quarter: 2018Q1

REPORT INFORMATION
  Report Type: Spontaneous
  Country: US (occurrence: US)
  Receive Date: 20180122
  Receipt Date: 20180122
  Transmission Date: 20180509
  Serious: Yes (Hospitalization)
  Sender: FDA-Public Use
  Company Number: None

PATIENT
  Age: 79 Year
  Sex: Male
  Weight: 86.18 kg

DRUGS (1)
  1. MAVYRET [Suspect]
     Active Substance: GLECAPREVIR\PIBRENTASVIR
     Dosage: 100/40MG
     Route: 048
     Dates: start: 20171205, end: 20171231

REACTIONS (2)
  - Renal failure [None]
  - Hepatic failure [None]

NARRATIVE: CASE EVENT DATE: 20171229
